FAERS Safety Report 7038270-6 (Version None)
Quarter: 2010Q4

REPORT INFORMATION
  Report Type: 
  Country: None (occurrence: None)
  Receive Date: 20101011
  Receipt Date: 20091124
  Transmission Date: 20110411
  Serious: No
  Sender: FDA-Public Use
  Company Number: US-PFIZER INC-2009269874

PATIENT
  Sex: Male
  Weight: 113.39 kg

DRUGS (5)
  1. NEURONTIN [Suspect]
     Dosage: UNK
     Route: 048
     Dates: start: 20050101, end: 20060101
  2. DICLOFEN [Concomitant]
     Indication: PAIN
     Dosage: UNK
     Route: 048
  3. OXYCONTIN [Concomitant]
     Indication: PAIN
     Dosage: 60 MG, 3X/DAY
     Route: 048
  4. VALIUM [Concomitant]
     Indication: PAIN
     Dosage: UNK
     Route: 048
  5. OXYCODONE [Concomitant]
     Indication: PAIN
     Dosage: 10 MG, AS NEEDED
     Route: 048

REACTIONS (4)
  - DRUG INEFFECTIVE [None]
  - DYSKINESIA [None]
  - HYPERACUSIS [None]
  - PHOTOSENSITIVITY REACTION [None]
